FAERS Safety Report 8912136 (Version 1)
Quarter: 2012Q4

REPORT INFORMATION
  Report Type: 
  Country: US (occurrence: US)
  Receive Date: 20121116
  Receipt Date: 20121116
  Transmission Date: 20130627
  Serious: No
  Sender: FDA-Public Use
  Company Number: US-009507513-1210USA005972

PATIENT
  Sex: Female

DRUGS (3)
  1. CLARITIN [Suspect]
     Indication: SNEEZING
     Dosage: 10 mg, Once
     Route: 048
     Dates: start: 20120806
  2. CLARITIN [Suspect]
     Indication: RHINORRHOEA
     Dosage: 10 mg, Once
     Route: 048
     Dates: start: 20120807
  3. CLARITIN [Suspect]
     Indication: HYPERSENSITIVITY

REACTIONS (2)
  - Somnolence [Unknown]
  - Drug ineffective [Unknown]
